FAERS Safety Report 10170762 (Version 2)
Quarter: 2014Q2

REPORT INFORMATION
  Report Type: Report from Study
  Country: JP (occurrence: JP)
  Receive Date: 20140514
  Receipt Date: 20140521
  Transmission Date: 20141212
  Serious: Yes (Other)
  Sender: FDA-Public Use
  Company Number: JP-ROCHE-1400416

PATIENT
  Age: 81 Year
  Sex: 0
  Weight: 47 kg

DRUGS (6)
  1. OMALIZUMAB [Suspect]
     Indication: ASTHMA
     Route: 058
     Dates: start: 20091014, end: 20091111
  2. MEPTIN [Concomitant]
  3. PREDONINE [Concomitant]
     Route: 065
     Dates: start: 20090520
  4. ADVAIR [Concomitant]
     Route: 065
     Dates: start: 20090415
  5. SINGULAIR [Concomitant]
     Route: 065
     Dates: start: 20090415
  6. THEODUR [Concomitant]

REACTIONS (2)
  - Depressive symptom [Recovered/Resolved]
  - Peak expiratory flow rate decreased [Recovered/Resolved]
